FAERS Safety Report 10455378 (Version 2)
Quarter: 2014Q3

REPORT INFORMATION
  Report Type: Spontaneous
  Country: US (occurrence: US)
  Receive Date: 20140916
  Receipt Date: 20140916
  Transmission Date: 20150326
  Serious: Yes (Other)
  Sender: FDA-Public Use
  Company Number: US-BEH-2014044560

PATIENT
  Age: 69 Year
  Sex: Female

DRUGS (3)
  1. CORIFACT [Suspect]
     Active Substance: FACTOR XIII CONCENTRATE (HUMAN)
     Indication: PROPHYLAXIS
     Dosage: BEFORE SURGERY
     Dates: start: 201201
  2. CORIFACT [Suspect]
     Active Substance: FACTOR XIII CONCENTRATE (HUMAN)
     Indication: FACTOR XIII DEFICIENCY
     Dosage: IMMEDIATELY BEFORE SURGERY
  3. CORIFACT [Suspect]
     Active Substance: FACTOR XIII CONCENTRATE (HUMAN)
     Indication: PREOPERATIVE CARE
     Dosage: PROPHYLAXIS

REACTIONS (1)
  - Procedural complication [Recovered/Resolved]
